FAERS Safety Report 5779309-5 (Version None)
Quarter: 2008Q2

REPORT INFORMATION
  Report Type: 
  Country: None (occurrence: None)
  Receive Date: 20080619
  Receipt Date: 20080123
  Transmission Date: 20081010
  Serious: No
  Sender: FDA-Public Use
  Company Number: US-ASTRAZENECA-2008UW01690

PATIENT
  Age: 61 Year
  Sex: Male
  Weight: 77.1 kg

DRUGS (4)
  1. ATACAND [Suspect]
     Indication: CARDIAC FAILURE
     Route: 048
     Dates: start: 20071201
  2. ATACAND [Suspect]
     Indication: EJECTION FRACTION ABNORMAL
     Route: 048
     Dates: start: 20071201
  3. TOPROL-XL [Concomitant]
     Route: 048
  4. COUMADIN [Concomitant]

REACTIONS (1)
  - MALAISE [None]
